FAERS Safety Report 9972461 (Version 1)
Quarter: 2014Q1

REPORT INFORMATION
  Report Type: Spontaneous
  Country: US (occurrence: None)
  Receive Date: 20140305
  Receipt Date: 20140305
  Transmission Date: 20141002
  Serious: Yes (Hospitalization)
  Sender: FDA-Public Use
  Company Number: None

PATIENT
  Age: 76 Year
  Sex: Male

DRUGS (7)
  1. TEMOZOLOMIDE 180MG TEVA [Suspect]
     Indication: BRAIN NEOPLASM MALIGNANT
     Dosage: 1 CAP QD
     Route: 048
  2. TEMOZOLOMIDE 140MG TEVA [Suspect]
     Indication: BRAIN NEOPLASM MALIGNANT
     Dosage: 1 CAP
     Route: 048
  3. GRANISETRON [Concomitant]
  4. PEPCID [Concomitant]
  5. COUMADIN [Concomitant]
  6. AMBIEN [Concomitant]
  7. PERCOCET [Concomitant]

REACTIONS (1)
  - Sepsis [None]
